FAERS Safety Report 12223860 (Version 2)
Quarter: 2016Q2

REPORT INFORMATION
  Report Type: Report from Study
  Country: DE (occurrence: DE)
  Receive Date: 20160330
  Receipt Date: 20160506
  Transmission Date: 20160815
  Serious: Yes (Hospitalization)
  Sender: FDA-Public Use
  Company Number: DE-ABBVIE-16K-062-1590435-00

PATIENT
  Age: 34 Year
  Sex: Female

DRUGS (3)
  1. INERGY [Concomitant]
     Indication: PRODUCT USED FOR UNKNOWN INDICATION
  2. CELECOXIB. [Concomitant]
     Active Substance: CELECOXIB
     Indication: PRODUCT USED FOR UNKNOWN INDICATION
  3. HUMIRA [Suspect]
     Active Substance: ADALIMUMAB
     Indication: ANKYLOSING SPONDYLITIS
     Route: 058
     Dates: start: 2014

REACTIONS (12)
  - Chromatopsia [Unknown]
  - Nystagmus [Unknown]
  - CSF lactate increased [Unknown]
  - Hypoaesthesia eye [Unknown]
  - Mydriasis [Unknown]
  - C-reactive protein increased [Unknown]
  - Diplopia [Unknown]
  - Hypoaesthesia [Recovered/Resolved]
  - Eye pain [Unknown]
  - Pupillary reflex impaired [Unknown]
  - Eye pain [Unknown]
  - Eyelid ptosis [Unknown]

NARRATIVE: CASE EVENT DATE: 201603
